FAERS Safety Report 6384460-5 (Version None)
Quarter: 2009Q4

REPORT INFORMATION
  Report Type: 
  Country: None (occurrence: None)
  Receive Date: 20091001
  Receipt Date: 20090924
  Transmission Date: 20100525
  Serious: No
  Sender: FDA-Public Use
  Company Number: US-B.I. PHARMACEUTICALS,INC./RIDGEFIELD-2009-BP-11242BP

PATIENT

DRUGS (1)
  1. FLOMAX [Suspect]

REACTIONS (1)
  - EJACULATION FAILURE [None]
